FAERS Safety Report 17064556 (Version 1)
Quarter: 2019Q4

REPORT INFORMATION
  Report Type: Spontaneous
  Country: US (occurrence: US)
  Receive Date: 20191122
  Receipt Date: 20191122
  Transmission Date: 20200122
  Serious: Yes (Hospitalization)
  Sender: FDA-Public Use
  Company Number: US-MYLANLABS-2019M1113203

PATIENT
  Age: 32 Year
  Sex: Female

DRUGS (13)
  1. CLINDAMYCIN. [Suspect]
     Active Substance: CLINDAMYCIN
     Indication: POST TREATMENT LYME DISEASE SYNDROME
     Route: 042
  2. LEUCOVORIN                         /00566701/ [Concomitant]
     Active Substance: LEUCOVORIN
     Indication: POST TREATMENT LYME DISEASE SYNDROME
     Route: 048
  3. AZITHROMYCIN ANHYDROUS. [Suspect]
     Active Substance: AZITHROMYCIN ANHYDROUS
     Indication: PNEUMONIA
     Route: 065
  4. MEROPENEM. [Suspect]
     Active Substance: MEROPENEM
     Indication: POST TREATMENT LYME DISEASE SYNDROME
     Dosage: UNK
     Route: 042
  5. MEROPENEM. [Suspect]
     Active Substance: MEROPENEM
     Indication: POST TREATMENT LYME DISEASE SYNDROME
     Dosage: ADMINISTERED EVERY OTHER DAY ALONG WITH CIPROFLOXACIN
     Route: 065
  6. SULPHAMETHOXAZOLE/TRIMETHOPRIM [Suspect]
     Active Substance: SULFAMETHOXAZOLE\TRIMETHOPRIM
     Indication: PNEUMONIA
     Route: 065
  7. PYRIMETHAMINE [Concomitant]
     Active Substance: PYRIMETHAMINE
     Indication: POST TREATMENT LYME DISEASE SYNDROME
     Route: 048
  8. IVERMECTIN. [Concomitant]
     Active Substance: IVERMECTIN
     Indication: POST TREATMENT LYME DISEASE SYNDROME
     Route: 048
  9. RIFABUTIN. [Suspect]
     Active Substance: RIFABUTIN
     Indication: POST TREATMENT LYME DISEASE SYNDROME
     Route: 048
  10. CIPROFLOXACIN. [Suspect]
     Active Substance: CIPROFLOXACIN
     Indication: POST TREATMENT LYME DISEASE SYNDROME
     Dosage: ADMINISTERED EVERY OTHER DAY
     Route: 065
  11. VANCOMYCIN [Suspect]
     Active Substance: VANCOMYCIN
     Indication: PNEUMONIA
     Route: 065
  12. TIGECYCLINE. [Suspect]
     Active Substance: TIGECYCLINE
     Indication: POST TREATMENT LYME DISEASE SYNDROME
     Route: 042
  13. METRONIDAZOLE. [Suspect]
     Active Substance: METRONIDAZOLE
     Indication: POST TREATMENT LYME DISEASE SYNDROME
     Route: 048

REACTIONS (4)
  - Device related infection [Recovering/Resolving]
  - Pathogen resistance [Unknown]
  - Mycobacterial infection [Recovering/Resolving]
  - Incorrect product administration duration [Unknown]
